FAERS Safety Report 7930707-0 (Version None)
Quarter: 2011Q4

REPORT INFORMATION
  Report Type: 
  Country: None (occurrence: None)
  Receive Date: 20111121
  Receipt Date: 20111116
  Transmission Date: 20120403
  Serious: Yes (Death, Hospitalization)
  Sender: FDA-Public Use
  Company Number: DK-PFIZER INC-2011280215

PATIENT
  Age: 82 Year
  Sex: Male

DRUGS (1)
  1. SUNITINIB MALATE [Suspect]
     Indication: METASTATIC RENAL CELL CARCINOMA
     Dosage: 50 MG, UNK
     Dates: start: 20070228, end: 20070510

REACTIONS (4)
  - CONSTIPATION [None]
  - HYPONATRAEMIA [None]
  - DEATH [None]
  - HYPOMAGNESAEMIA [None]
